FAERS Safety Report 25072516 (Version 2)
Quarter: 2025Q2

REPORT INFORMATION
  Report Type: Spontaneous
  Country: DK (occurrence: DK)
  Receive Date: 20250313
  Receipt Date: 20250526
  Transmission Date: 20250716
  Serious: Yes (Hospitalization, Other)
  Sender: ROCHE
  Company Number: DK-ROCHE-10000225212

PATIENT
  Age: 49 Year
  Sex: Female

DRUGS (2)
  1. OCREVUS [Suspect]
     Active Substance: OCRELIZUMAB
     Indication: Relapsing multiple sclerosis
     Route: 065
     Dates: start: 20221110
  2. GILENYA [Concomitant]
     Active Substance: FINGOLIMOD HYDROCHLORIDE
     Dates: start: 2015

REACTIONS (18)
  - Depressive symptom [Unknown]
  - Weight decreased [Unknown]
  - Night sweats [Unknown]
  - Malaise [Unknown]
  - Balance disorder [Unknown]
  - Fall [Unknown]
  - Headache [Unknown]
  - Paresis [Unknown]
  - Ataxia [Unknown]
  - Fatigue [Unknown]
  - Facial nerve disorder [Unknown]
  - Dysmetria [Unknown]
  - Diplopia [Unknown]
  - Loss of proprioception [Unknown]
  - Eye movement disorder [Unknown]
  - Tremor [Unknown]
  - Resting tremor [Unknown]
  - Borrelia infection [Unknown]
